FAERS Safety Report 15993827 (Version 1)
Quarter: 2019Q1

REPORT INFORMATION
  Report Type: Spontaneous
  Country: US (occurrence: US)
  Receive Date: 20190222
  Receipt Date: 20190222
  Transmission Date: 20190418
  Serious: No
  Sender: FDA-Public Use
  Company Number: US-BEH-2019099767

PATIENT
  Age: 26 Year
  Sex: Female

DRUGS (2)
  1. PRIVIGEN [Suspect]
     Active Substance: HUMAN IMMUNOGLOBULIN G
     Dosage: 30 G, QMT
     Route: 042
     Dates: start: 20181217
  2. PRIVIGEN [Suspect]
     Active Substance: HUMAN IMMUNOGLOBULIN G
     Indication: IMMUNODEFICIENCY
     Dosage: 5 G, QMT
     Route: 042
     Dates: start: 20181217

REACTIONS (3)
  - Migraine [Unknown]
  - Nausea [Unknown]
  - Photophobia [Unknown]

NARRATIVE: CASE EVENT DATE: 20190213
